FAERS Safety Report 5280374-2 (Version None)
Quarter: 2007Q1

REPORT INFORMATION
  Report Type: 
  Country: None (occurrence: None)
  Receive Date: 20070329
  Receipt Date: 20070322
  Transmission Date: 20070707
  Serious: Yes (Other)
  Sender: FDA-Public Use
  Company Number: US-ROCHE-489139

PATIENT
  Age: 28 Year
  Sex: Female
  Weight: 70.3 kg

DRUGS (2)
  1. ACCUTANE [Suspect]
     Indication: ACNE
     Route: 048
     Dates: start: 19981008, end: 19990209
  2. ACCUTANE [Suspect]
     Route: 048
     Dates: start: 19970102, end: 19970522

REACTIONS (1)
  - ABORTION SPONTANEOUS [None]
